FAERS Safety Report 8462285-4 (Version None)
Quarter: 2012Q2

REPORT INFORMATION
  Report Type: 
  Country: None (occurrence: None)
  Receive Date: 20120625
  Receipt Date: 20120618
  Transmission Date: 20120825
  Serious: Yes (Hospitalization)
  Sender: FDA-Public Use
  Company Number: US-BAYER-2012-061106

PATIENT
  Age: 39 Year
  Sex: Female
  Weight: 204.8 kg

DRUGS (19)
  1. TRIMOX [Concomitant]
     Dosage: 500 MG, TID
     Route: 048
     Dates: start: 20031212
  2. ALPRAZOLAM [Concomitant]
     Indication: ANXIETY
     Dosage: 0.25 MG TABLET, TAKE ONE THREE TIMES A DAY AS NEEDED
     Dates: start: 20040109
  3. LISINOPRIL [Concomitant]
     Dosage: 20 MG, UNK
  4. PREDNISONE TAB [Concomitant]
     Dosage: 5 MG TABLET, START AFTER FINISHING 20 MG PREDNISONE, TAKE 1 TABLET DAILY FOR 2 DAYS
     Dates: start: 20040123
  5. XOPENEX [Concomitant]
     Dosage: 0.63 MG/3 ML SOLUTION, USE 1 VIAL WITH NEBULIZER EVERY 8 HOURS
     Dates: start: 20040123
  6. IPRATROPIUM BROMIDE [Concomitant]
     Dosage: 0.02% SOLUTION, USE WITH NEBULIZER EVERY EIGHT HOURS
     Dates: start: 20040123
  7. COMBIVENT [Concomitant]
     Dosage: USE 2 PUFFS EVERY FOUR HOURS AS NEEDED
     Dates: start: 20040106
  8. PREDNISONE TAB [Concomitant]
     Dosage: 20 MG TABLETS, 1 TAB 3 TIMES A DAY FOR 3 DAYS, 1 TAB 2 TIMES A DAY FOR 3 DAYS, 1 TAB DAILY FOR 3 DAY
     Dates: start: 20040123
  9. FUROSEMIDE [Concomitant]
     Dosage: 40 MG TABLET, TAKE ONE TABLET DAILY
     Dates: start: 20040123
  10. POTASSIUM CHLORIDE [Concomitant]
     Dosage: 20 MEQ TAB (INTERPRETED AS TABLET), TAKE ONE TABLET DAILY
     Dates: start: 20040123
  11. ADVAIR DISKUS 100/50 [Concomitant]
     Dosage: UNK UNK, PRN
  12. ALPRAZOLAM [Concomitant]
     Dosage: 0.5 MG TABLET, TAKE ? TO 1 TABLET EVERY SIX HOURS AS NEEDED
     Dates: start: 20040123
  13. PULMICORT [Concomitant]
     Dosage: 0.5 MG/2ML USE WITH NEBULIZER EVERY TWELVE HOURS [
     Dates: start: 20040123
  14. ZITHROMAX [Concomitant]
     Dosage: 250 MG TABLET, ONE DAILY FOR 4 DAYS
     Route: 048
     Dates: start: 20040106
  15. MOTRIN [Concomitant]
  16. LASIX [Concomitant]
     Indication: HYPERTENSION
     Dosage: 20 MG, UNK
     Route: 048
  17. YASMIN [Suspect]
  18. PREDNISONE TAB [Concomitant]
     Dosage: 20 MG TABLETS TAKE 2 TABLETS EVERY DAY FOR 4 DAYS
     Dates: start: 20040106
  19. VANTIN [Concomitant]
     Dosage: 200 MG TABLET, TAKE 2 TABLETS TWO TIMES A DAY FOR 10 DAYS
     Dates: start: 20040109

REACTIONS (1)
  - PULMONARY EMBOLISM [None]
